FAERS Safety Report 14838129 (Version 1)
Quarter: 2018Q2

REPORT INFORMATION
  Report Type: Spontaneous
  Country: US (occurrence: US)
  Receive Date: 20180417
  Receipt Date: 20180417
  Transmission Date: 20180711
  Serious: Yes (Other)
  Sender: FDA-Public Use
  Company Number: None

PATIENT
  Age: 67 Year
  Sex: Female
  Weight: 60.75 kg

DRUGS (5)
  1. SINUS TABLET [Concomitant]
  2. SIMVASTATIN 10MG [Suspect]
     Active Substance: SIMVASTATIN
     Indication: BLOOD CHOLESTEROL INCREASED
     Dosage: ?          QUANTITY:1 TABLET(S);?
     Route: 048
     Dates: start: 20180310, end: 20180314
  3. ADVAIR HFA [Concomitant]
     Active Substance: FLUTICASONE PROPIONATE\SALMETEROL XINAFOATE
  4. CALCIUM [Concomitant]
     Active Substance: CALCIUM
  5. CITALAPRAM [Concomitant]

REACTIONS (5)
  - Headache [None]
  - Total lung capacity decreased [None]
  - Bronchial disorder [None]
  - Respiratory tract congestion [None]
  - Chest pain [None]

NARRATIVE: CASE EVENT DATE: 20180311
